FAERS Safety Report 4378187-9 (Version None)
Quarter: 2004Q2

REPORT INFORMATION
  Report Type: 
  Country: None (occurrence: None)
  Receive Date: 20040609
  Receipt Date: 20040527
  Transmission Date: 20050107
  Serious: Yes (Death, Other)
  Sender: FDA-Public Use
  Company Number: 163-20785-04040580

PATIENT
  Age: 74 Year
  Sex: Female

DRUGS (1)
  1. THALOMID [Suspect]
     Indication: MULTIPLE MYELOMA
     Dosage: 200 MG, DAILY, ORAL
     Route: 048
     Dates: start: 20040402, end: 20040101

REACTIONS (5)
  - CONVULSION [None]
  - PYREXIA [None]
  - RASH [None]
  - STOMATITIS [None]
  - WEIGHT DECREASED [None]
